FAERS Safety Report 11209419 (Version 2)
Quarter: 2015Q3

REPORT INFORMATION
  Report Type: Report from Study
  Country: CA (occurrence: CA)
  Receive Date: 20150622
  Receipt Date: 20150721
  Transmission Date: 20151125
  Serious: Yes (Hospitalization, Other)
  Sender: FDA-Public Use
  Company Number: PHHY2014CA131488

PATIENT
  Age: 29 Year
  Sex: Male

DRUGS (1)
  1. SANDOSTATIN LAR DEPOT [Suspect]
     Active Substance: OCTREOTIDE ACETATE
     Indication: PANCREATIC NEUROENDOCRINE TUMOUR
     Dosage: 30 MG, QMO
     Route: 030
     Dates: start: 20140905

REACTIONS (8)
  - Body temperature decreased [Unknown]
  - Second primary malignancy [Unknown]
  - Malignant neoplasm progression [Unknown]
  - Diarrhoea [Unknown]
  - Flushing [Recovered/Resolved]
  - Renal cell carcinoma [Unknown]
  - Pneumonia [Recovering/Resolving]
  - Neoplasm [Unknown]

NARRATIVE: CASE EVENT DATE: 20141003
